FAERS Safety Report 7907699-3 (Version None)
Quarter: 2011Q4

REPORT INFORMATION
  Report Type: 
  Country: None (occurrence: None)
  Receive Date: 20111109
  Receipt Date: 20111025
  Transmission Date: 20120403
  Serious: Yes (Life-Threatening, Hospitalization)
  Sender: FDA-Public Use
  Company Number: BR-20110093

PATIENT
  Age: 78 Year
  Sex: Female

DRUGS (1)
  1. HEXABRIX [Suspect]
     Indication: CENTRAL VENOUS CATHETERISATION
     Dosage: INTRAVENOUS (NOT OTHERWISE SPECIFIED)
     Route: 042
     Dates: start: 20111019, end: 20111019

REACTIONS (2)
  - DISTRIBUTIVE SHOCK [None]
  - ANAPHYLACTIC REACTION [None]
